FAERS Safety Report 25690859 (Version 1)
Quarter: 2025Q3

REPORT INFORMATION
  Report Type: Spontaneous
  Country: JP (occurrence: JP)
  Receive Date: 20250818
  Receipt Date: 20250818
  Transmission Date: 20251021
  Serious: Yes (Life-Threatening)
  Sender: ROCHE
  Company Number: JP-CHUGAI-2025020201

PATIENT
  Age: 78 Year
  Sex: Male
  Weight: 65 kg

DRUGS (7)
  1. TECENTRIQ [Suspect]
     Active Substance: ATEZOLIZUMAB
     Indication: Lung adenocarcinoma
     Dosage: 1200 MILLIGRAM, ONCE/3WEEKS
     Route: 042
     Dates: start: 20240418, end: 20240613
  2. CARBOPLATIN [Concomitant]
     Active Substance: CARBOPLATIN
     Indication: Lung adenocarcinoma
     Route: 042
     Dates: start: 20240418, end: 20240613
  3. CARBOPLATIN [Concomitant]
     Active Substance: CARBOPLATIN
     Route: 042
     Dates: start: 202407
  4. PACLITAXEL [Concomitant]
     Active Substance: PACLITAXEL
     Indication: Lung adenocarcinoma
     Route: 042
     Dates: start: 20240418, end: 20240418
  5. PACLITAXEL [Concomitant]
     Active Substance: PACLITAXEL
     Route: 042
     Dates: start: 20240425, end: 20240425
  6. PACLITAXEL [Concomitant]
     Active Substance: PACLITAXEL
     Route: 042
     Dates: start: 20240502, end: 20240502
  7. PACLITAXEL [Concomitant]
     Active Substance: PACLITAXEL
     Route: 042
     Dates: start: 202405, end: 20240627

REACTIONS (7)
  - Diabetic ketoacidosis [Recovering/Resolving]
  - Hyperglycaemic hyperosmolar nonketotic syndrome [Recovering/Resolving]
  - Rhabdomyolysis [Recovered/Resolved]
  - Activities of daily living decreased [Unknown]
  - Stasis dermatitis [Unknown]
  - Type 1 diabetes mellitus [Recovering/Resolving]
  - Drug eruption [Unknown]

NARRATIVE: CASE EVENT DATE: 20240504
